FAERS Safety Report 15827326 (Version 4)
Quarter: 2019Q1

REPORT INFORMATION
  Report Type: Report from Study
  Country: GB (occurrence: GB)
  Receive Date: 20190115
  Receipt Date: 20190204
  Transmission Date: 20190417
  Serious: Yes (Life-Threatening)
  Sender: FDA-Public Use
  Company Number: GB-PFIZER INC-2019015742

PATIENT
  Weight: 37 kg

DRUGS (10)
  1. IDARUBICIN [Concomitant]
     Active Substance: IDARUBICIN
     Indication: ACUTE MYELOID LEUKAEMIA
  2. ITRACONAZOLE. [Concomitant]
     Active Substance: ITRACONAZOLE
     Indication: ANTIBIOTIC THERAPY
     Dosage: 100 MG, 2X/DAY
     Dates: start: 20180904
  3. LEVOPROMAZIN [Concomitant]
     Active Substance: LEVOMEPROMAZINE
     Indication: ANTIEMETIC SUPPORTIVE CARE
     Dosage: 6.0 MG, 3X/DAY
     Dates: start: 20180727
  4. MITOXANTRONE HCL [Suspect]
     Active Substance: MITOXANTRONE HYDROCHLORIDE
     Indication: ACUTE MYELOID LEUKAEMIA
     Dosage: 13.2 MG/M2, 1X/DAY
     Route: 042
     Dates: start: 20180728, end: 201809
  5. ONDANSETRAN [Concomitant]
     Active Substance: ONDANSETRON HYDROCHLORIDE
     Indication: ANTIEMETIC SUPPORTIVE CARE
     Dosage: 6.0 MG, 3X/DAY
     Dates: start: 20180727
  6. MAXITROL [Concomitant]
     Active Substance: DEXAMETHASONE\NEOMYCIN SULFATE\POLYMYXIN B SULFATE
     Indication: DRY EYE
     Dosage: 1 GTT, 2X/DAY
     Dates: start: 20181219
  7. CYTARABINE. [Suspect]
     Active Substance: CYTARABINE
     Indication: ACUTE MYELOID LEUKAEMIA
     Dosage: 3.3 G, 1X/DAY
     Route: 042
     Dates: start: 20180905, end: 20181229
  8. FLUDARABINE [Concomitant]
     Active Substance: FLUDARABINE PHOSPHATE
     Indication: ACUTE MYELOID LEUKAEMIA
     Dosage: 33 MG, 1X/DAY
     Route: 042
     Dates: start: 20181022, end: 20181024
  9. GEMTUZUMAB OZOGAMICIN [Suspect]
     Active Substance: GEMTUZUMAB OZOGAMICIN
     Indication: ACUTE MYELOID LEUKAEMIA
     Dosage: 3.3 MG, UNK
     Route: 042
     Dates: start: 20180802, end: 20180802
  10. MAXIDEX [Concomitant]
     Active Substance: DEXAMETHASONE
     Indication: DRY EYE
     Dosage: 1.0 GTT, 3X/DAY
     Dates: start: 20180719

REACTIONS (2)
  - Hypotension [Not Recovered/Not Resolved]
  - Sepsis [Not Recovered/Not Resolved]

NARRATIVE: CASE EVENT DATE: 20181230
